FAERS Safety Report 4286152-5 (Version None)
Quarter: 2004Q1

REPORT INFORMATION
  Report Type: 
  Country: None (occurrence: None)
  Receive Date: 20040204
  Receipt Date: 20040204
  Transmission Date: 20041129
  Serious: Yes (Life-Threatening, Hospitalization)
  Sender: FDA-Public Use
  Company Number: None

PATIENT
  Age: 22 Year
  Sex: Female
  Weight: 56.6996 kg

DRUGS (1)
  1. BACTRIM [Suspect]
     Indication: STAPHYLOCOCCAL INFECTION
     Dosage: 2 7 DAYS ORAL
     Route: 048
     Dates: start: 20031208, end: 20031220

REACTIONS (2)
  - PATHOGEN RESISTANCE [None]
  - STEVENS-JOHNSON SYNDROME [None]
